FAERS Safety Report 4499319-8 (Version None)
Quarter: 2004Q3

REPORT INFORMATION
  Report Type: 
  Country: None (occurrence: None)
  Receive Date: 20040928
  Receipt Date: 20040728
  Transmission Date: 20050211
  Serious: No
  Sender: FDA-Public Use
  Company Number: 04P-163-0268567-00

PATIENT
  Age: 53 Year
  Sex: Female
  Weight: 81.1939 kg

DRUGS (6)
  1. HUMIRA [Suspect]
     Indication: RHEUMATOID ARTHRITIS
     Dosage: 40 MG, 1 IN 2 WK, SUBCUTANEOUS
     Route: 058
     Dates: start: 20040605
  2. ESRATEST HS [Concomitant]
  3. METHOTREXATE SODIUM [Concomitant]
  4. FLUOXETINE HYDROCHLORIDE [Concomitant]
  5. CALCIUM GLUCONATE [Concomitant]
  6. CYANOCOBALAMIN [Concomitant]

REACTIONS (3)
  - ARTHROPOD STING [None]
  - SKIN DISCOLOURATION [None]
  - SWELLING [None]
